FAERS Safety Report 5296245-1 (Version None)
Quarter: 2007Q2

REPORT INFORMATION
  Report Type: 
  Country: None (occurrence: None)
  Receive Date: 20070406
  Receipt Date: 20070322
  Transmission Date: 20071010
  Serious: Yes (Other)
  Sender: FDA-Public Use
  Company Number: 2007SP005462

PATIENT
  Sex: Male

DRUGS (11)
  1. DESLORATADINE [Suspect]
     Indication: HYPERSENSITIVITY
     Dosage: 5 MG;QD;PO
     Route: 048
  2. AMLOR (CON.) [Concomitant]
  3. TAHOR (CON.) [Concomitant]
  4. MEDIATENSYL (CON.) [Concomitant]
  5. PLAVIX (CON.) [Concomitant]
  6. ZESTORETIC (CON.) [Concomitant]
  7. DIAFUSOR (CON.) [Concomitant]
  8. NATISPRAY (CON.) [Concomitant]
  9. INSPRA (CON.) [Concomitant]
  10. AZELASTINE (CON.) [Concomitant]
  11. OMIX (CON.) [Concomitant]

REACTIONS (1)
  - URINARY TRACT OBSTRUCTION [None]
